FAERS Safety Report 14330385 (Version 2)
Quarter: 2018Q1

REPORT INFORMATION
  Report Type: Spontaneous
  Country: JP (occurrence: JP)
  Receive Date: 20171227
  Receipt Date: 20180103
  Transmission Date: 20180509
  Serious: Yes (Hospitalization)
  Sender: FDA-Public Use
  Company Number: JP-MYLANLABS-2017M1080686

PATIENT
  Age: 5 Decade
  Sex: Female

DRUGS (1)
  1. NOLVADEX                           /00388701/ [Suspect]
     Active Substance: TAMOXIFEN CITRATE
     Indication: BREAST CANCER FEMALE
     Route: 048

REACTIONS (2)
  - Hypertriglyceridaemia [Recovered/Resolved]
  - Pancreatitis acute [Recovering/Resolving]
